FAERS Safety Report 9584884 (Version 1)
Quarter: 2013Q4

REPORT INFORMATION
  Report Type: Spontaneous
  Country: US (occurrence: US)
  Receive Date: 20131002
  Receipt Date: 20131002
  Transmission Date: 20140711
  Serious: No
  Sender: FDA-Public Use
  Company Number: US-AMGEN-USASP2013055984

PATIENT
  Age: 61 Year
  Sex: Female

DRUGS (9)
  1. ENBREL [Suspect]
     Indication: PRODUCT USED FOR UNKNOWN INDICATION
     Dosage: 50 MG, 2 TIMES/WK
     Route: 058
  2. TRIAMCINOLON                       /00031901/ [Concomitant]
     Dosage: 0.025 %, UNK
  3. METOPROLOL [Concomitant]
     Dosage: 25 MG, UNK
  4. NORVASC [Concomitant]
     Dosage: 5 MG, UNK
  5. METFORMIN [Concomitant]
     Dosage: 500 MG, UNK
  6. COLESTIPOL [Concomitant]
     Dosage: 1 G, UNK
  7. ZANTAC [Concomitant]
     Dosage: 75 UNK, UNK
  8. CITRACAL + D                       /01438101/ [Concomitant]
     Dosage: UNK
  9. FISH OIL [Concomitant]
     Dosage: UNK

REACTIONS (3)
  - Hepatic enzyme increased [Unknown]
  - Rash [Unknown]
  - Drug ineffective [Unknown]
